FAERS Safety Report 8984475 (Version 1)
Quarter: 2012Q4

REPORT INFORMATION
  Report Type: Spontaneous
  Country: IT (occurrence: None)
  Receive Date: 20121213
  Receipt Date: 20121213
  Transmission Date: 20130627
  Serious: Yes (Hospitalization)
  Sender: FDA-Public Use
  Company Number: FK201203709

PATIENT
  Age: 54 Year
  Sex: Female

DRUGS (9)
  1. PACLITAXEL [Suspect]
     Indication: CERVIX CARCINOMA
     Route: 042
     Dates: start: 20120910, end: 20120910
  2. CARBOPLATIN [Concomitant]
  3. RANIDIL (RANITIDINE HYDROCHLORIDE) [Concomitant]
  4. SOLDESAM (DEXAMETHASONE SODIUM PHOSPHATE) [Concomitant]
  5. NAVOBAN (TROPISETRON HYDROCHLORIDE) [Concomitant]
  6. TRIMETON (CHLORPHENAMINE MALEATE) [Concomitant]
  7. DEURSIL (URSODEOXYCHOLIC ACID) [Concomitant]
  8. URBASON SOLUBLE (METHYLPREDNISOLONE SODIUM SUCCINATE) [Concomitant]
  9. EUTIROX (LEVOTHYROXINE) [Concomitant]

REACTIONS (3)
  - Feeling hot [None]
  - Tongue oedema [None]
  - Tremor [None]
